FAERS Safety Report 5234084-8 (Version None)
Quarter: 2007Q1

REPORT INFORMATION
  Report Type: 
  Country: None (occurrence: None)
  Receive Date: 20070208
  Receipt Date: 20070130
  Transmission Date: 20070707
  Serious: Yes (Hospitalization)
  Sender: FDA-Public Use
  Company Number: ES-PFIZER INC-2007007609

PATIENT
  Age: 82 Year
  Sex: Female

DRUGS (6)
  1. ALDACTONE [Suspect]
     Indication: CARDIAC FAILURE
     Route: 048
  2. MIRTAZAPINE [Interacting]
     Indication: DEPRESSION
     Route: 048
     Dates: start: 20060117, end: 20061122
  3. FUROSEMIDE [Interacting]
     Indication: CARDIAC FAILURE
     Route: 048
  4. RIVOTRIL [Concomitant]
     Indication: EPILEPSY
     Route: 048
  5. DIGOXIN [Concomitant]
     Indication: CARDIAC FAILURE
     Route: 048
  6. OMEPRAZOLE [Concomitant]
     Route: 048

REACTIONS (3)
  - CONFUSIONAL STATE [None]
  - DRUG INTERACTION [None]
  - HYPONATRAEMIA [None]
